FAERS Safety Report 7612528 (Version 2)
Quarter: 2013Q1

REPORT INFORMATION
  Report Type: Spontaneous
  Country: US (occurrence: US)
  Receive Date: 20100930
  Receipt Date: 20130328
  Transmission Date: 20140127
  Serious: Yes (Death, Hospitalization, Other)
  Sender: FDA-Public Use
  Company Number: US-US-EMD SERONO, INC.-230004M09USA

PATIENT
  Age: 56 Year
  Sex: Female
  Weight: 85 kg

DRUGS (2)
  1. REBIF [Suspect]
     Indication: MULTIPLE SCLEROSIS
     Route: 058
     Dates: start: 200410, end: 200901
  2. REBIF [Suspect]
     Route: 058
     Dates: start: 20091002, end: 20100126

REACTIONS (3)
  - Ovarian cancer stage IV [Fatal]
  - Metastases to central nervous system [Fatal]
  - Intraductal proliferative breast lesion [Recovering/Resolving]
